FAERS Safety Report 5807158-8 (Version None)
Quarter: 2008Q3

REPORT INFORMATION
  Report Type: 
  Country: None (occurrence: None)
  Receive Date: 20080709
  Receipt Date: 20080709
  Transmission Date: 20090109
  Serious: Yes (Other)
  Sender: FDA-Public Use
  Company Number: None

PATIENT
  Sex: Female
  Weight: 68.0396 kg

DRUGS (1)
  1. MIRENA [Suspect]

REACTIONS (4)
  - HAEMORRHAGE [None]
  - IUCD COMPLICATION [None]
  - LACERATION [None]
  - PENIS DISORDER [None]
